FAERS Safety Report 19059165 (Version 2)
Quarter: 2021Q2

REPORT INFORMATION
  Report Type: Spontaneous
  Country: GB (occurrence: GB)
  Receive Date: 20210326
  Receipt Date: 20210419
  Transmission Date: 20210717
  Serious: Yes (Hospitalization)
  Sender: FDA-Public Use
  Company Number: GB-BIOGEN-2021BI00993083

PATIENT
  Sex: Male

DRUGS (5)
  1. PLEGRIDY [Suspect]
     Active Substance: PEGINTERFERON BETA-1A
     Route: 058
     Dates: start: 202102
  2. VITAMIN D [Concomitant]
     Active Substance: VITAMIN D NOS
     Indication: PRODUCT USED FOR UNKNOWN INDICATION
     Route: 065
  3. PLEGRIDY [Suspect]
     Active Substance: PEGINTERFERON BETA-1A
     Dosage: INJECT 63MCG (ORANGE PEN) ON DAY 1 FOLLOWED BY 94MCG (BLUE PEN) ON DAY 15
     Route: 058
     Dates: start: 20210317
  4. VITAMIN E [Concomitant]
     Active Substance: .ALPHA.-TOCOPHEROL
     Indication: PRODUCT USED FOR UNKNOWN INDICATION
     Route: 065
  5. PLEGRIDY [Suspect]
     Active Substance: PEGINTERFERON BETA-1A
     Indication: MULTIPLE SCLEROSIS
     Dosage: INJECT 63MCG (ORANGE PEN) ON DAY 1 FOLLOWED BY 94MCG (BLUE PEN) ON DAY 15
     Route: 058
     Dates: start: 20210302

REACTIONS (3)
  - Contusion [Unknown]
  - Fall [Recovered/Resolved]
  - Concussion [Unknown]
